FAERS Safety Report 21849492 (Version 2)
Quarter: 2023Q1

REPORT INFORMATION
  Report Type: Spontaneous
  Country: US (occurrence: US)
  Receive Date: 20230111
  Receipt Date: 20230119
  Transmission Date: 20230418
  Serious: No
  Sender: FDA-Public Use
  Company Number: US-TEVA-2023-US-2842972

PATIENT
  Age: 82 Year
  Sex: Female
  Weight: 74.84 kg

DRUGS (4)
  1. PROAIR HFA [Suspect]
     Active Substance: ALBUTEROL SULFATE
     Indication: Product used for unknown indication
     Dosage: 90 MCG/DOSE,2 PUFFS,AS NEEDED
     Route: 065
  2. PROAIR HFA [Suspect]
     Active Substance: ALBUTEROL SULFATE
     Dosage: 90 MCG/DOSE,1 PUFF INSTEAD OF 2 OR TAKING UP TO 5 PUFFS IN A DAY
     Route: 065
  3. ALBUTEROL SULFATE [Interacting]
     Active Substance: ALBUTEROL SULFATE
     Indication: Product used for unknown indication
     Dosage: 90 MCG/DOSE
     Route: 065
  4. ALBUTEROL SULFATE [Interacting]
     Active Substance: ALBUTEROL SULFATE

REACTIONS (2)
  - Oral mucosal blistering [Unknown]
  - Incorrect dose administered [Unknown]
